FAERS Safety Report 9605268 (Version 2)
Quarter: 2013Q4

REPORT INFORMATION
  Report Type: Report from Study
  Country: US (occurrence: US)
  Receive Date: 20131008
  Receipt Date: 20131008
  Transmission Date: 20140711
  Serious: Yes (Hospitalization)
  Sender: FDA-Public Use
  Company Number: US-ACTELION-A-US2013-88400

PATIENT
  Age: 31 Year
  Sex: Female

DRUGS (1)
  1. VELETRI [Suspect]
     Indication: PULMONARY ARTERIAL HYPERTENSION
     Dosage: 12 NG/KG, PER MIN
     Route: 042
     Dates: start: 20130705

REACTIONS (8)
  - Device related infection [Unknown]
  - Staphylococcal bacteraemia [Unknown]
  - Nausea [Unknown]
  - Chills [Unknown]
  - Hypotension [Unknown]
  - Blood culture positive [Unknown]
  - Renal disorder [Unknown]
  - Dermatitis contact [Unknown]
